FAERS Safety Report 4277469-9 (Version None)
Quarter: 2004Q1

REPORT INFORMATION
  Report Type: 
  Country: None (occurrence: None)
  Receive Date: 20040122
  Receipt Date: 20040115
  Transmission Date: 20041129
  Serious: Yes (Life-Threatening, Hospitalization)
  Sender: FDA-Public Use
  Company Number: US-BRISTOL-MYERS SQUIBB COMPANY-12478772

PATIENT
  Age: 26 Year
  Sex: Male
  Weight: 68 kg

DRUGS (6)
  1. SUSTIVA [Suspect]
     Indication: HIV INFECTION
     Dosage: TEMPORARILY HELD ON 17-DEC-2003 DUE TO SAE
     Route: 048
     Dates: start: 20031210
  2. KALETRA [Suspect]
     Indication: HIV INFECTION
     Dosage: TEMPORARILY HELD ON 17-DEC-2003 DUE TO SAE.
     Route: 048
     Dates: start: 20031210
  3. SEPTRA [Concomitant]
     Indication: PROPHYLAXIS
     Dates: end: 20031201
  4. CLINDAMYCIN [Concomitant]
     Dates: end: 20031201
  5. DAPSONE [Concomitant]
     Dates: end: 20031201
  6. IBUPROFEN [Concomitant]
     Indication: PYREXIA
     Dates: end: 20031201

REACTIONS (3)
  - HYPERKALAEMIA [None]
  - NEPHROPATHY [None]
  - RENAL FAILURE ACUTE [None]
